FAERS Safety Report 20726446 (Version 2)
Quarter: 2022Q4

REPORT INFORMATION
  Report Type: Spontaneous
  Country: JP (occurrence: None)
  Receive Date: 20220419
  Receipt Date: 20221124
  Transmission Date: 20230113
  Serious: Yes (Death, Other)
  Sender: FDA-Public Use
  Company Number: 2021A750299

PATIENT
  Age: 72 Year
  Sex: Female

DRUGS (2)
  1. LYNPARZA [Suspect]
     Active Substance: OLAPARIB
     Indication: Ovarian cancer recurrent
     Dosage: DOSE UNKNOWN400.0MG UNKNOWN
     Route: 048
     Dates: start: 20190430, end: 20190625
  2. LYNPARZA [Suspect]
     Active Substance: OLAPARIB
     Indication: Ovarian cancer recurrent
     Dosage: DOSE UNKNOWN UNKNOWN
     Route: 048
     Dates: start: 20190820, end: 20210216

REACTIONS (2)
  - Neutrophil count decreased [Fatal]
  - Psoas abscess [Fatal]

NARRATIVE: CASE EVENT DATE: 20190625
